FAERS Safety Report 4432541-5 (Version None)
Quarter: 2004Q3

REPORT INFORMATION
  Report Type: 
  Country: None (occurrence: None)
  Receive Date: 20040818
  Receipt Date: 20040809
  Transmission Date: 20050211
  Serious: Yes (Hospitalization, Other)
  Sender: FDA-Public Use
  Company Number: ZANA001332

PATIENT
  Age: 63 Year
  Sex: Male

DRUGS (6)
  1. ZANAFLEX [Suspect]
     Indication: PAIN
  2. HYDROCODONE (HYDROCODONE) [Concomitant]
  3. ACETAMINOPHEN [Concomitant]
  4. CARBAMAZEPINE [Concomitant]
  5. ASPIRIN [Concomitant]
  6. UNSPECIFIED ANTIHYPERTENSIVE (UNSPECIFIED ANTIHYPERTENSIVE) [Concomitant]

REACTIONS (4)
  - DEPRESSION [None]
  - GENERAL PHYSICAL HEALTH DETERIORATION [None]
  - HIP FRACTURE [None]
  - ORTHOSTATIC HYPOTENSION [None]
